FAERS Safety Report 6041238-X (Version None)
Quarter: 2009Q1

REPORT INFORMATION
  Report Type: 
  Country: None (occurrence: None)
  Receive Date: 20090116
  Receipt Date: 20080919
  Transmission Date: 20090719
  Serious: No
  Sender: FDA-Public Use
  Company Number: US-BRISTOL-MYERS SQUIBB COMPANY-14341911

PATIENT
  Age: 27 Year
  Sex: Male
  Weight: 69 kg

DRUGS (6)
  1. ABILIFY [Suspect]
     Indication: SCHIZOPHRENIA, PARANOID TYPE
     Dosage: 1 DOSAGE FORM=1/2 TAB AT NIGHT ABOUT 1.5 YRS
  2. LEXAPRO [Concomitant]
  3. ASCORBIC ACID [Concomitant]
  4. VITAMIN D [Concomitant]
  5. PROBIOTICA [Concomitant]
  6. GLYSENNID [Concomitant]

REACTIONS (1)
  - HYPERTHYROIDISM [None]
